FAERS Safety Report 19905924 (Version 1)
Quarter: 2021Q4

REPORT INFORMATION
  Report Type: Spontaneous
  Country: US (occurrence: US)
  Receive Date: 20211001
  Receipt Date: 20211001
  Transmission Date: 20220303
  Serious: Yes (Other)
  Sender: FDA-Public Use
  Company Number: US-HIKMA PHARMACEUTICALS USA INC.-US-H14001-21-04170

PATIENT
  Age: 74 Year
  Sex: Female
  Weight: 65.77 kg

DRUGS (2)
  1. METHOTREXATE [Suspect]
     Active Substance: METHOTREXATE
     Indication: Rheumatoid arthritis
     Dosage: THREE TABLETS ALL AT ONCE, ONCE A WEEK
     Route: 065
  2. INFLECTRA [Suspect]
     Active Substance: INFLIXIMAB-DYYB
     Indication: Rheumatoid arthritis
     Dosage: INFUSED VIA IV INFUSION EVERY EIGHT WEEKS
     Route: 041

REACTIONS (8)
  - Cellulitis [Recovering/Resolving]
  - Contusion [Not Recovered/Not Resolved]
  - Skin atrophy [Not Recovered/Not Resolved]
  - Hearing aid user [Unknown]
  - Oedema peripheral [Unknown]
  - Purpura [Unknown]
  - Clumsiness [Unknown]
  - Skin laceration [Unknown]

NARRATIVE: CASE EVENT DATE: 20210802
